FAERS Safety Report 9089332 (Version 1)
Quarter: 2013Q1

REPORT INFORMATION
  Report Type: Spontaneous
  Country: US (occurrence: US)
  Receive Date: 20130201
  Receipt Date: 20130201
  Transmission Date: 20140127
  Serious: No
  Sender: FDA-Public Use
  Company Number: US-GALDERMA-US-GDP-12414777

PATIENT
  Age: 11 Year
  Sex: Female

DRUGS (1)
  1. EPIDUO [Suspect]
     Indication: ACNE
     Route: 061
     Dates: start: 20120808, end: 20120811

REACTIONS (5)
  - Skin burning sensation [Recovering/Resolving]
  - Erythema [Recovering/Resolving]
  - Swelling face [Recovered/Resolved]
  - Pain of skin [Recovered/Resolved]
  - Crying [None]
